FAERS Safety Report 8334910-X (Version None)
Quarter: 2012Q2

REPORT INFORMATION
  Report Type: 
  Country: None (occurrence: None)
  Receive Date: 20120503
  Receipt Date: 20120425
  Transmission Date: 20120825
  Serious: Yes (Hospitalization)
  Sender: FDA-Public Use
  Company Number: JP-JNJFOC-20120409758

PATIENT
  Sex: Female
  Weight: 38.7 kg

DRUGS (5)
  1. TAPENTADOL HYDROCHLORIDE [Suspect]
     Indication: CANCER PAIN
     Dosage: TWICE A DAY
     Route: 048
     Dates: start: 20120327, end: 20120417
  2. SOLDEM 3A [Concomitant]
     Route: 042
     Dates: start: 20120419, end: 20120420
  3. VITAMEDIN [Concomitant]
     Route: 042
     Dates: start: 20120418, end: 20120418
  4. SOLDEM 3A [Concomitant]
     Route: 042
     Dates: start: 20120418, end: 20120418
  5. LACTEC [Concomitant]
     Route: 042
     Dates: start: 20120417, end: 20120417

REACTIONS (1)
  - FALL [None]
